FAERS Safety Report 6780185-2 (Version None)
Quarter: 2010Q2

REPORT INFORMATION
  Report Type: 
  Country: None (occurrence: None)
  Receive Date: 20100618
  Receipt Date: 20100609
  Transmission Date: 20101027
  Serious: No
  Sender: FDA-Public Use
  Company Number: US-B.I. PHARMACEUTICALS,INC./RIDGEFIELD-2010-BP-06584BP

PATIENT
  Sex: Male

DRUGS (3)
  1. ZANTAC 75 [Suspect]
     Indication: GASTRITIS
     Dosage: 75 MG
     Route: 048
     Dates: start: 20100609
  2. ZANTAC 75 [Suspect]
     Indication: GASTROOESOPHAGEAL REFLUX DISEASE
  3. FLOMAX [Concomitant]
     Indication: PROSTATOMEGALY

REACTIONS (1)
  - DRY MOUTH [None]
